FAERS Safety Report 4942494-9 (Version None)
Quarter: 2006Q1

REPORT INFORMATION
  Report Type: 
  Country: None (occurrence: None)
  Receive Date: 20060313
  Receipt Date: 20050315
  Transmission Date: 20060701
  Serious: No
  Sender: FDA-Public Use
  Company Number: US-GLAXOSMITHKLINE-A0549768A

PATIENT
  Age: 45 Year
  Sex: Female

DRUGS (1)
  1. NICORETTE (MINT) [Suspect]
     Dates: start: 20050314, end: 20050314

REACTIONS (3)
  - NAUSEA [None]
  - THROAT IRRITATION [None]
  - VOMITING [None]
